FAERS Safety Report 6527409-4 (Version None)
Quarter: 2010Q1

REPORT INFORMATION
  Report Type: 
  Country: None (occurrence: None)
  Receive Date: 20100105
  Receipt Date: 20091225
  Transmission Date: 20100710
  Serious: Yes (Hospitalization, Other)
  Sender: FDA-Public Use
  Company Number: JP-PFIZER INC-2009308251

PATIENT
  Age: 76 Year
  Sex: Female
  Weight: 80 kg

DRUGS (6)
  1. FARMORUBICIN [Suspect]
     Indication: BREAST CANCER RECURRENT
     Dosage: 129 MG, UNK
     Route: 042
     Dates: start: 20090910, end: 20091001
  2. FLUOROURACIL [Suspect]
     Indication: BREAST CANCER RECURRENT
     Dosage: 860 MG, UNK
     Route: 042
     Dates: start: 20090910, end: 20091001
  3. ENDOXAN [Suspect]
     Indication: BREAST CANCER RECURRENT
     Dosage: 860 MG, UNK
     Route: 042
     Dates: start: 20090910, end: 20091001
  4. DECADRON [Concomitant]
     Dosage: UNK
     Route: 048
     Dates: start: 20090911, end: 20091004
  5. ONDANSETRON [Concomitant]
     Dosage: UNK
     Route: 048
     Dates: start: 20090911, end: 20091004
  6. GASTER [Concomitant]
     Dosage: UNK
     Route: 048
     Dates: start: 20090911, end: 20091004

REACTIONS (1)
  - INTERSTITIAL LUNG DISEASE [None]
